FAERS Safety Report 12203585 (Version 2)
Quarter: 2016Q2

REPORT INFORMATION
  Report Type: Spontaneous
  Country: US (occurrence: US)
  Receive Date: 20160323
  Receipt Date: 20160406
  Transmission Date: 20160815
  Serious: Yes (Hospitalization)
  Sender: FDA-Public Use
  Company Number: US-BEH-2016060286

PATIENT
  Sex: Male
  Weight: 69 kg

DRUGS (26)
  1. PREDNISONE. [Concomitant]
     Active Substance: PREDNISONE
  2. BUDESONIDE. [Concomitant]
     Active Substance: BUDESONIDE
  3. SINGULAIR [Concomitant]
     Active Substance: MONTELUKAST SODIUM
  4. ZEMAIRA [Suspect]
     Active Substance: .ALPHA.1-PROTEINASE INHIBITOR HUMAN
     Indication: ALPHA-1 ANTI-TRYPSIN DEFICIENCY
     Dosage: STRENGTH OF DOSAGE FORM: 961MG/VL, 90MG/KG
  5. BACTRIM [Concomitant]
     Active Substance: SULFAMETHOXAZOLE\TRIMETHOPRIM
  6. CALCIUM 600+VITD3 [Concomitant]
  7. CEFTRIAXONE. [Concomitant]
     Active Substance: CEFTRIAXONE
  8. PROTONIX [Concomitant]
     Active Substance: PANTOPRAZOLE SODIUM
  9. IPRATROPIUM BR [Concomitant]
  10. AZELASTINE [Concomitant]
     Active Substance: AZELASTINE
  11. PULMICORT TURBUHALER [Concomitant]
     Active Substance: BUDESONIDE
  12. SODIUM CHLORIDE. [Concomitant]
     Active Substance: SODIUM CHLORIDE
  13. LMX [Concomitant]
     Active Substance: LIDOCAINE
  14. NYSTATIN. [Concomitant]
     Active Substance: NYSTATIN
  15. OXYGEN. [Concomitant]
     Active Substance: OXYGEN
  16. FLONASE [Concomitant]
     Active Substance: FLUTICASONE PROPIONATE
  17. ALPRAZOLAM. [Concomitant]
     Active Substance: ALPRAZOLAM
  18. XOPENEX [Concomitant]
     Active Substance: LEVALBUTEROL HYDROCHLORIDE
  19. AVELOX [Concomitant]
     Active Substance: MOXIFLOXACIN HYDROCHLORIDE
  20. DIPHENHYDRAMINE. [Concomitant]
     Active Substance: DIPHENHYDRAMINE
  21. EPIPEN [Concomitant]
     Active Substance: EPINEPHRINE
  22. CIALIS [Concomitant]
     Active Substance: TADALAFIL
  23. SUCRALFATE. [Concomitant]
     Active Substance: SUCRALFATE
  24. MUCINEX [Concomitant]
     Active Substance: GUAIFENESIN
  25. VALTREX [Concomitant]
     Active Substance: VALACYCLOVIR HYDROCHLORIDE
  26. METFORMIN [Concomitant]
     Active Substance: METFORMIN HYDROCHLORIDE

REACTIONS (1)
  - Fatigue [Unknown]
